FAERS Safety Report 14067039 (Version 6)
Quarter: 2018Q4

REPORT INFORMATION
  Report Type: Report from Study
  Country: BR (occurrence: BR)
  Receive Date: 20171009
  Receipt Date: 20181011
  Transmission Date: 20190204
  Serious: Yes (Other)
  Sender: FDA-Public Use
  Company Number: PHHY2017BR148002

PATIENT
  Sex: Female
  Weight: 68 kg

DRUGS (7)
  1. ACLASTA [Suspect]
     Active Substance: ZOLEDRONIC ACID
     Indication: OSTEOPOROSIS
     Dosage: 1 DF, Q12MO
     Route: 042
  2. ACLASTA [Suspect]
     Active Substance: ZOLEDRONIC ACID
     Dosage: 1 DF, Q12MO
     Route: 042
     Dates: start: 20170929
  3. ALPRAZOLAM. [Suspect]
     Active Substance: ALPRAZOLAM
     Indication: ANXIETY
     Dosage: 1 DF, QD
     Route: 048
     Dates: start: 2012, end: 2018
  4. DOMPERIDONE [Concomitant]
     Active Substance: DOMPERIDONE
     Indication: PROPHYLAXIS
     Dosage: 2 DF, QD
     Route: 048
     Dates: start: 2011
  5. DAFLON [Concomitant]
     Indication: THROMBOSIS PROPHYLAXIS
     Dosage: 1 DF, QD
     Route: 048
     Dates: start: 2015
  6. ZOLPIDEM [Concomitant]
     Active Substance: ZOLPIDEM\ZOLPIDEM TARTRATE
     Indication: INSOMNIA
     Dosage: 1 DF, QD
     Route: 048
     Dates: start: 201708
  7. LEVOTHYROXINE. [Concomitant]
     Active Substance: LEVOTHYROXINE
     Indication: THYROIDECTOMY
     Dosage: 1 DF, QD
     Route: 048
     Dates: start: 2011

REACTIONS (28)
  - Bone pain [Unknown]
  - Vein disorder [Unknown]
  - Influenza [Unknown]
  - Arthralgia [Recovering/Resolving]
  - Mobility decreased [Unknown]
  - Myalgia [Unknown]
  - Pyrexia [Recovered/Resolved]
  - Gait disturbance [Recovering/Resolving]
  - Ligament rupture [Unknown]
  - Body height decreased [Not Recovered/Not Resolved]
  - Panic disorder [Not Recovered/Not Resolved]
  - Osteoarthritis [Not Recovered/Not Resolved]
  - Sciatica [Unknown]
  - Nasopharyngitis [Recovered/Resolved]
  - Pain [Recovering/Resolving]
  - Malaise [Recovering/Resolving]
  - Application site pain [Unknown]
  - Fibromyalgia [Not Recovered/Not Resolved]
  - Rhinitis [Not Recovered/Not Resolved]
  - Rheumatoid arthritis [Not Recovered/Not Resolved]
  - Headache [Unknown]
  - Weight increased [Unknown]
  - Bone disorder [Unknown]
  - Arthritis [Recovering/Resolving]
  - Anger [Recovering/Resolving]
  - Muscular weakness [Recovering/Resolving]
  - Asthenia [Not Recovered/Not Resolved]
  - Balance disorder [Not Recovered/Not Resolved]

NARRATIVE: CASE EVENT DATE: 2017
